FAERS Safety Report 15840528 (Version 1)
Quarter: 2019Q1

REPORT INFORMATION
  Report Type: Report from Study
  Country: None (occurrence: CA)
  Receive Date: 20190118
  Receipt Date: 20190118
  Transmission Date: 20190417
  Serious: Yes (Hospitalization)
  Sender: FDA-Public Use
  Company Number: CA-ABBVIE-19K-028-2622698-00

PATIENT
  Age: 30 Year
  Sex: Female

DRUGS (1)
  1. HUMIRA [Suspect]
     Active Substance: ADALIMUMAB
     Indication: CROHN^S DISEASE
     Route: 058
     Dates: start: 20180817, end: 201812

REACTIONS (7)
  - Gastrointestinal disorder [Unknown]
  - Blood pressure decreased [Unknown]
  - Speech disorder [Unknown]
  - Vomiting [Unknown]
  - Diarrhoea [Unknown]
  - Abdominal abscess [Unknown]
  - Skin discolouration [Unknown]

NARRATIVE: CASE EVENT DATE: 20181201
